FAERS Safety Report 14569923 (Version 3)
Quarter: 2019Q2

REPORT INFORMATION
  Report Type: Spontaneous
  Country: US (occurrence: US)
  Receive Date: 20180225
  Receipt Date: 20190502
  Transmission Date: 20190711
  Serious: Yes (Other)
  Sender: FDA-Public Use
  Company Number: US-JNJFOC-20180217021

PATIENT
  Sex: Male

DRUGS (1)
  1. ZYTIGA [Suspect]
     Active Substance: ABIRATERONE ACETATE
     Indication: PRODUCT USED FOR UNKNOWN INDICATION
     Dosage: 250 MG 4 TABLETS ONCE DAILY
     Route: 048
     Dates: start: 20170818

REACTIONS (4)
  - Muscle atrophy [Not Recovered/Not Resolved]
  - Osteoporosis [Unknown]
  - Systolic hypertension [Unknown]
  - Cataract [Not Recovered/Not Resolved]
